FAERS Safety Report 9496812 (Version 1)
Quarter: 2013Q3

REPORT INFORMATION
  Report Type: Spontaneous
  Country: CN (occurrence: CN)
  Receive Date: 20130904
  Receipt Date: 20130904
  Transmission Date: 20140515
  Serious: Yes (Death, Life-Threatening)
  Sender: FDA-Public Use
  Company Number: CN-PFIZER INC-2013251100

PATIENT
  Age: 57 Year
  Sex: Female

DRUGS (2)
  1. ZYVOX [Suspect]
     Indication: SEPSIS
     Dosage: 600 MG, 2X/DAY
     Route: 041
     Dates: start: 20120519, end: 20120525
  2. VORICONAZOLE [Suspect]
     Indication: FUNGAL INFECTION

REACTIONS (4)
  - Cardiac arrest [Fatal]
  - Loss of consciousness [Fatal]
  - Renal failure [Not Recovered/Not Resolved]
  - Blood pressure decreased [Not Recovered/Not Resolved]
